FAERS Safety Report 5825450-8 (Version None)
Quarter: 2008Q3

REPORT INFORMATION
  Report Type: 
  Country: None (occurrence: None)
  Receive Date: 20080729
  Receipt Date: 20071206
  Transmission Date: 20090109
  Serious: No
  Sender: FDA-Public Use
  Company Number: US-BAYER-200714072BCC

PATIENT
  Age: 78 Year
  Sex: Female
  Weight: 67 kg

DRUGS (14)
  1. ALEVE (CAPLET) [Suspect]
     Indication: ANALGESIA
     Dosage: TOTAL DAILY DOSE: 440 MG  UNIT DOSE: 220 MG
     Route: 048
     Dates: start: 20071001
  2. ALEVE (CAPLET) [Suspect]
     Dosage: TOTAL DAILY DOSE: 220 MG  UNIT DOSE: 220 MG
     Route: 048
     Dates: start: 20071206
  3. AMARYL [Concomitant]
  4. HUMULIN 70/30 [Concomitant]
  5. HUMULIN 70/30 [Concomitant]
  6. COREG [Concomitant]
  7. CRESTOR [Concomitant]
  8. DIOVAN [Concomitant]
  9. NORVASC [Concomitant]
  10. PAXIL [Concomitant]
  11. PLAVIX [Concomitant]
  12. ASPIRIN [Concomitant]
  13. ASPIRIN [Concomitant]
  14. REQUIP [Concomitant]

REACTIONS (2)
  - HYPERHIDROSIS [None]
  - NIGHT SWEATS [None]
